FAERS Safety Report 4406610-X (Version None)
Quarter: 2004Q3

REPORT INFORMATION
  Report Type: 
  Country: None (occurrence: None)
  Receive Date: 20040723
  Receipt Date: 20040622
  Transmission Date: 20050211
  Serious: Yes (Hospitalization)
  Sender: FDA-Public Use
  Company Number: 2004011396

PATIENT
  Age: 66 Year
  Sex: Female
  Weight: 85 kg

DRUGS (5)
  1. QUILONUM RETARD [Suspect]
     Dosage: 3TAB PER DAY
     Route: 048
  2. LAMICTAL [Suspect]
     Dosage: 150MG PER DAY
     Route: 048
  3. TAXILAN [Suspect]
     Dosage: 50MG PER DAY
     Route: 048
  4. XANEF [Suspect]
     Route: 048
  5. DYTIDE H [Suspect]
     Route: 048

REACTIONS (9)
  - BRADYCARDIA [None]
  - DEHYDRATION [None]
  - DRUG TOXICITY [None]
  - OVERDOSE [None]
  - PSYCHOTIC DISORDER [None]
  - RENAL FAILURE [None]
  - SOMNOLENCE [None]
  - SUICIDE ATTEMPT [None]
  - URINARY TRACT INFECTION [None]
